FAERS Safety Report 13896313 (Version 1)
Quarter: 2017Q3

REPORT INFORMATION
  Report Type: Spontaneous
  Country: US (occurrence: None)
  Receive Date: 20170814
  Receipt Date: 20170814
  Transmission Date: 20171127
  Serious: Yes (Other)
  Sender: FDA-Public Use
  Company Number: None

PATIENT
  Age: 37 Year
  Sex: Male
  Weight: 69.85 kg

DRUGS (1)
  1. ZUBSOLV [Suspect]
     Active Substance: BUPRENORPHINE HYDROCHLORIDE\NALOXONE HYDROCHLORIDE
     Indication: DRUG DEPENDENCE
     Route: 060
     Dates: start: 20170731, end: 20170811

REACTIONS (5)
  - Tongue discomfort [None]
  - Drug ineffective [None]
  - Extra dose administered [None]
  - Tongue ulceration [None]
  - Glossodynia [None]

NARRATIVE: CASE EVENT DATE: 20170731
